FAERS Safety Report 11456135 (Version 1)
Quarter: 2015Q3

REPORT INFORMATION
  Report Type: Spontaneous
  Country: IN (occurrence: IN)
  Receive Date: 20150903
  Receipt Date: 20150903
  Transmission Date: 20151125
  Serious: Yes (Other)
  Sender: FDA-Public Use
  Company Number: IN-FRESENIUS KABI-FK201504147

PATIENT
  Age: 1 Year
  Sex: Female

DRUGS (1)
  1. VALPROATE [Suspect]
     Active Substance: VALPROIC ACID
     Indication: NEONATAL ASPHYXIA
     Route: 065

REACTIONS (4)
  - Liver function test abnormal [Recovered/Resolved]
  - Off label use [Recovered/Resolved]
  - Hyperammonaemia [Recovered/Resolved]
  - Generalised tonic-clonic seizure [Recovered/Resolved]
